FAERS Safety Report 23590703 (Version 1)
Quarter: 2024Q1

REPORT INFORMATION
  Report Type: Spontaneous
  Country: US (occurrence: US)
  Receive Date: 20240304
  Receipt Date: 20240304
  Transmission Date: 20240410
  Serious: Yes (Other)
  Sender: FDA-Public Use
  Company Number: US-BIOCON-BCN-2024-000035

PATIENT
  Age: 76 Year
  Sex: Male
  Weight: 61.69 kg

DRUGS (3)
  1. ROSUVASTATIN [Suspect]
     Active Substance: ROSUVASTATIN
     Indication: Blood cholesterol increased
     Dosage: 10 MG TABLET ONCE EVERY MORNING
     Dates: start: 20220908, end: 20230824
  2. VITAMIN D [Concomitant]
     Active Substance: VITAMIN D NOS
     Indication: Osteopenia
     Dosage: 1 TABLET EVERY 10 DAYS
  3. IBUPROFEN [Concomitant]
     Active Substance: IBUPROFEN
     Indication: Meniscus injury
     Dosage: OCCASIONALLY (AS REQUIRED)

REACTIONS (12)
  - Spinal cord disorder [Not Recovered/Not Resolved]
  - Palpitations [Recovered/Resolved]
  - Flatulence [Unknown]
  - Muscle atrophy [Unknown]
  - Dysphonia [Not Recovered/Not Resolved]
  - Weight decreased [Not Recovered/Not Resolved]
  - Arthropathy [Unknown]
  - Condition aggravated [Unknown]
  - Dyspnoea [Not Recovered/Not Resolved]
  - Productive cough [Not Recovered/Not Resolved]
  - Asthenia [Unknown]
  - Myalgia [Not Recovered/Not Resolved]

NARRATIVE: CASE EVENT DATE: 20221226
